FAERS Safety Report 4789508-7 (Version None)
Quarter: 2005Q3

REPORT INFORMATION
  Report Type: 
  Country: None (occurrence: None)
  Receive Date: 20050914
  Receipt Date: 20040916
  Transmission Date: 20060218
  Serious: Yes (Hospitalization)
  Sender: FDA-Public Use
  Company Number: 163-20785-04090432

PATIENT
  Age: 62 Year
  Sex: Male

DRUGS (12)
  1. THALOMID [Suspect]
     Indication: MULTIPLE MYELOMA
     Dosage: 200 MG, AT BEDTIME, ORAL
     Route: 048
     Dates: start: 20040820
  2. MELPHALAN (MELPHALAN) [Concomitant]
  3. COLCHICINE (COLCHICINE) [Concomitant]
  4. ACYCLOVIR [Concomitant]
  5. OXYCODONE HCL [Concomitant]
  6. ALLEGRA [Concomitant]
  7. ACIPHEX [Concomitant]
  8. SENOKOT/SENNA (SENOKOT-S) [Concomitant]
  9. TAMSULOSIN HCL [Concomitant]
  10. LISINOPRIL [Concomitant]
  11. METOPROLOL TARTRATE [Concomitant]
  12. M.V.I. [Concomitant]

REACTIONS (5)
  - ASTHENIA [None]
  - DIARRHOEA [None]
  - INFECTION [None]
  - NAUSEA [None]
  - VOMITING [None]
